FAERS Safety Report 6191073-7 (Version None)
Quarter: 2009Q2

REPORT INFORMATION
  Report Type: 
  Country: None (occurrence: None)
  Receive Date: 20090513
  Receipt Date: 20090513
  Transmission Date: 20091009
  Serious: Yes (Hospitalization)
  Sender: FDA-Public Use
  Company Number: None

PATIENT
  Sex: Male
  Weight: 74.8435 kg

DRUGS (1)
  1. DIGOXIN [Suspect]
     Indication: CARDIAC FIBRILLATION
     Dosage: 0.125 MG 1 DAILY ORAL
     Route: 048
     Dates: start: 20080523, end: 20081013

REACTIONS (8)
  - AMYLOIDOSIS [None]
  - ATRIAL FIBRILLATION [None]
  - BLOOD PRESSURE DECREASED [None]
  - CARDIAC FAILURE [None]
  - FLUID RETENTION [None]
  - RENAL FAILURE [None]
  - RETCHING [None]
  - THERAPEUTIC AGENT TOXICITY [None]
